FAERS Safety Report 11942503 (Version 1)
Quarter: 2016Q1

REPORT INFORMATION
  Report Type: Spontaneous
  Country: US (occurrence: US)
  Receive Date: 20160125
  Receipt Date: 20160125
  Transmission Date: 20160526
  Serious: No
  Sender: FDA-Public Use
  Company Number: US-UNITED THERAPEUTICS-UNT-2015-006366

PATIENT
  Sex: Female
  Weight: 68.93 kg

DRUGS (1)
  1. REMODULIN [Suspect]
     Active Substance: TREPROSTINIL
     Indication: PULMONARY HYPERTENSION
     Dosage: 0.126 ?G/KG/MIN, CONTINUING
     Route: 058
     Dates: start: 20100503

REACTIONS (2)
  - Back pain [Unknown]
  - Pain in extremity [Unknown]
